FAERS Safety Report 12180823 (Version 1)
Quarter: 2016Q1

REPORT INFORMATION
  Report Type: Spontaneous
  Country: US (occurrence: US)
  Receive Date: 20160315
  Receipt Date: 20160315
  Transmission Date: 20160526
  Serious: Yes (Death, Other)
  Sender: FDA-Public Use
  Company Number: US-PFIZER INC-2016150600

PATIENT
  Age: 26 Year
  Sex: Male

DRUGS (1)
  1. CHANTIX [Suspect]
     Active Substance: VARENICLINE TARTRATE
     Indication: SMOKING CESSATION THERAPY
     Dosage: UNK
     Route: 048
     Dates: start: 20140101, end: 20140311

REACTIONS (11)
  - Anxiety [Unknown]
  - Psychotic disorder [Unknown]
  - Paranoia [Unknown]
  - Delusion [Unknown]
  - Homicidal ideation [Unknown]
  - Hallucination [Unknown]
  - Agitation [Unknown]
  - Completed suicide [Fatal]
  - Hostility [Unknown]
  - Panic disorder [Unknown]
  - Mood altered [Unknown]

NARRATIVE: CASE EVENT DATE: 2014
